FAERS Safety Report 7975158-8 (Version None)
Quarter: 2011Q4

REPORT INFORMATION
  Report Type: 
  Country: None (occurrence: None)
  Receive Date: 20111213
  Receipt Date: 20111103
  Transmission Date: 20120403
  Serious: No
  Sender: FDA-Public Use
  Company Number: US-AMGEN-USASP2011057288

PATIENT
  Age: 47 Year
  Sex: Female

DRUGS (2)
  1. ENBREL [Suspect]
     Indication: PSORIATIC ARTHROPATHY
     Dosage: 50 MG, QWK
     Dates: start: 20111001
  2. THYROID THERAPY [Concomitant]

REACTIONS (6)
  - INJECTION SITE REACTION [None]
  - ANKYLOSING SPONDYLITIS [None]
  - INJECTION SITE ERYTHEMA [None]
  - HEADACHE [None]
  - INJECTION SITE INFLAMMATION [None]
  - EXPOSURE TO COMMUNICABLE DISEASE [None]
